FAERS Safety Report 17392172 (Version 12)
Quarter: 2021Q1

REPORT INFORMATION
  Report Type: Spontaneous
  Country: US (occurrence: US)
  Receive Date: 20200207
  Receipt Date: 20210325
  Transmission Date: 20210419
  Serious: Yes (Other)
  Sender: FDA-Public Use
  Company Number: PHHY2017US181249

PATIENT
  Age: 63 Year
  Sex: Male

DRUGS (31)
  1. JAKAFI [Suspect]
     Active Substance: RUXOLITINIB
     Indication: POLYCYTHAEMIA VERA
     Dosage: 15 MG, BID
     Route: 048
     Dates: start: 20171121
  2. JAKAFI [Suspect]
     Active Substance: RUXOLITINIB
     Dosage: 20 MG, QD
     Route: 048
  3. JAKAFI [Suspect]
     Active Substance: RUXOLITINIB
     Dosage: 45 MG, QD (25 MG QAM AND 20 MG QPM)
     Route: 048
  4. CLOPIDOGREL [Concomitant]
     Active Substance: CLOPIDOGREL BISULFATE
     Indication: PRODUCT USED FOR UNKNOWN INDICATION
     Route: 065
  5. CRESTOR [Concomitant]
     Active Substance: ROSUVASTATIN CALCIUM
     Indication: PRODUCT USED FOR UNKNOWN INDICATION
     Route: 065
  6. PEG [Concomitant]
     Active Substance: POLYETHYLENE GLYCOLS
     Indication: PRODUCT USED FOR UNKNOWN INDICATION
     Route: 065
  7. ZOLOFT [Concomitant]
     Active Substance: SERTRALINE HYDROCHLORIDE
     Indication: PRODUCT USED FOR UNKNOWN INDICATION
     Route: 065
  8. JAKAFI [Suspect]
     Active Substance: RUXOLITINIB
     Dosage: 15 MG, BID
     Route: 048
  9. JAKAFI [Suspect]
     Active Substance: RUXOLITINIB
     Dosage: 20 MG, BID
     Route: 048
  10. JAKAFI [Suspect]
     Active Substance: RUXOLITINIB
     Dosage: 20 MG, BID
     Route: 048
  11. LISINOPRIL. [Concomitant]
     Active Substance: LISINOPRIL
     Indication: PRODUCT USED FOR UNKNOWN INDICATION
     Route: 065
  12. JAKAFI [Suspect]
     Active Substance: RUXOLITINIB
     Dosage: 10 MG, BID
     Route: 048
     Dates: start: 20171129, end: 201712
  13. JAKAFI [Suspect]
     Active Substance: RUXOLITINIB
     Dosage: 20 MG, BID
     Route: 048
  14. JAKAFI [Suspect]
     Active Substance: RUXOLITINIB
     Dosage: 20 MG, BID
     Route: 048
  15. JAKAFI [Suspect]
     Active Substance: RUXOLITINIB
     Dosage: 15 MILLIGRAM QAM AND 20 MILLIGRAM QPM
     Route: 065
  16. ASPIRIN. [Concomitant]
     Active Substance: ASPIRIN
     Indication: PRODUCT USED FOR UNKNOWN INDICATION
     Dosage: 81 MG
     Route: 065
  17. VITAMIN D [Concomitant]
     Active Substance: VITAMIN D NOS
     Indication: PRODUCT USED FOR UNKNOWN INDICATION
     Dosage: UNK
     Route: 065
  18. JAKAFI [Suspect]
     Active Substance: RUXOLITINIB
     Dosage: 20 MG, BID
     Route: 048
     Dates: start: 202004
  19. JAKAFI [Suspect]
     Active Substance: RUXOLITINIB
     Dosage: 20 MG, BID
     Route: 048
  20. JAKAFI [Suspect]
     Active Substance: RUXOLITINIB
     Dosage: 15 MG, BID
     Route: 048
     Dates: start: 201712
  21. JAKAFI [Suspect]
     Active Substance: RUXOLITINIB
     Dosage: 40 MG
     Route: 048
  22. JAKAFI [Suspect]
     Active Substance: RUXOLITINIB
     Dosage: 25 MG, BID
     Route: 048
     Dates: start: 20171122
  23. JAKAFI [Suspect]
     Active Substance: RUXOLITINIB
     Dosage: 25 MG, QD
     Route: 048
  24. JAKAFI [Suspect]
     Active Substance: RUXOLITINIB
     Dosage: 15 MG, BID
     Route: 048
  25. PAROXETINE. [Suspect]
     Active Substance: PAROXETINE
     Indication: PANIC ATTACK
     Dosage: UNK
     Route: 065
     Dates: start: 20180410
  26. XANAX [Suspect]
     Active Substance: ALPRAZOLAM
     Indication: INSOMNIA
     Dosage: UNK (PM)
     Route: 065
  27. JAKAFI [Suspect]
     Active Substance: RUXOLITINIB
     Indication: MYELOFIBROSIS
     Dosage: 10 MG, BID
     Route: 048
     Dates: start: 20171122
  28. JAKAFI [Suspect]
     Active Substance: RUXOLITINIB
     Dosage: 15 MG, BID
     Route: 048
     Dates: start: 201902
  29. JAKAFI [Suspect]
     Active Substance: RUXOLITINIB
     Dosage: 45 MG, QD (30 MG, QAM / 15 MG, QPM)
     Route: 048
  30. AMOXICILLIN. [Suspect]
     Active Substance: AMOXICILLIN
     Indication: PRODUCT USED FOR UNKNOWN INDICATION
     Dosage: UNK
     Route: 065
     Dates: start: 2017
  31. METOPROLOL. [Concomitant]
     Active Substance: METOPROLOL
     Indication: PRODUCT USED FOR UNKNOWN INDICATION
     Dosage: 25 MG (ER)
     Route: 065

REACTIONS (75)
  - Feeling hot [Not Recovered/Not Resolved]
  - Abnormal dreams [Not Recovered/Not Resolved]
  - Pain [Recovered/Resolved]
  - Myalgia [Not Recovered/Not Resolved]
  - Fatigue [Not Recovered/Not Resolved]
  - Ligament rupture [Unknown]
  - Body temperature increased [Unknown]
  - Sunburn [Not Recovered/Not Resolved]
  - Headache [Not Recovered/Not Resolved]
  - Blood pressure increased [Recovered/Resolved]
  - Drug ineffective [Unknown]
  - Serotonin syndrome [Unknown]
  - Pigmentation disorder [Recovered/Resolved]
  - Aggression [Unknown]
  - Dyspnoea [Unknown]
  - Chest discomfort [Unknown]
  - Left ventricular dysfunction [Unknown]
  - Condition aggravated [Recovering/Resolving]
  - Laryngeal disorder [Unknown]
  - Restless legs syndrome [Not Recovered/Not Resolved]
  - Weight decreased [Unknown]
  - Chest pain [Unknown]
  - Sciatica [Unknown]
  - Aneurysm [Unknown]
  - Drug hypersensitivity [Not Recovered/Not Resolved]
  - Oropharyngeal pain [Unknown]
  - Flatulence [Unknown]
  - Diplopia [Unknown]
  - Back pain [Not Recovered/Not Resolved]
  - Abdominal distension [Not Recovered/Not Resolved]
  - Hyperhidrosis [Unknown]
  - Cold sweat [Not Recovered/Not Resolved]
  - Confusional state [Unknown]
  - Malaise [Not Recovered/Not Resolved]
  - Scratch [Unknown]
  - Decreased activity [Not Recovered/Not Resolved]
  - Haematocrit abnormal [Not Recovered/Not Resolved]
  - Asthenia [Not Recovered/Not Resolved]
  - Infection [Not Recovered/Not Resolved]
  - Somnolence [Not Recovered/Not Resolved]
  - Pharyngeal disorder [Unknown]
  - Feeling abnormal [Unknown]
  - Memory impairment [Unknown]
  - Electrocardiogram abnormal [Unknown]
  - Nausea [Unknown]
  - Laboratory test abnormal [Unknown]
  - Constipation [Not Recovered/Not Resolved]
  - Bleeding time abnormal [Unknown]
  - Thinking abnormal [Unknown]
  - Anxiety [Recovering/Resolving]
  - Neck pain [Unknown]
  - Panic attack [Unknown]
  - Dry skin [Not Recovered/Not Resolved]
  - Limb injury [Unknown]
  - Haemorrhage [Unknown]
  - Arthralgia [Unknown]
  - Night sweats [Unknown]
  - Burning sensation [Unknown]
  - Frustration tolerance decreased [Unknown]
  - Intervertebral disc protrusion [Unknown]
  - Feeling cold [Not Recovered/Not Resolved]
  - Red blood cell count increased [Not Recovered/Not Resolved]
  - Hypotension [Not Recovered/Not Resolved]
  - Diarrhoea [Not Recovered/Not Resolved]
  - Atrioventricular block [Unknown]
  - Product dose omission issue [Unknown]
  - Alopecia [Unknown]
  - Dizziness postural [Unknown]
  - Contusion [Unknown]
  - Insomnia [Not Recovered/Not Resolved]
  - Feeling of relaxation [Unknown]
  - Bronchitis [Unknown]
  - Platelet count increased [Not Recovered/Not Resolved]
  - Viral infection [Recovered/Resolved]
  - Weight increased [Not Recovered/Not Resolved]

NARRATIVE: CASE EVENT DATE: 201711
